FAERS Safety Report 7171168-1 (Version None)
Quarter: 2010Q4

REPORT INFORMATION
  Report Type: 
  Country: None (occurrence: None)
  Receive Date: 20101217
  Receipt Date: 20101202
  Transmission Date: 20110411
  Serious: Yes (Death, Hospitalization)
  Sender: FDA-Public Use
  Company Number: NL-GENENTECH-310799

PATIENT
  Sex: Male

DRUGS (3)
  1. RANIBIZUMAB [Suspect]
     Indication: DIABETIC RETINAL OEDEMA
     Dosage: 0.5 MG, QD
     Route: 031
     Dates: start: 20100118
  2. DOXYCYCLINE [Concomitant]
     Indication: PRODUCT USED FOR UNKNOWN INDICATION
  3. PANTOPRAZOLE [Concomitant]
     Indication: PRODUCT USED FOR UNKNOWN INDICATION

REACTIONS (8)
  - ALANINE AMINOTRANSFERASE ABNORMAL [None]
  - ANAEMIA [None]
  - ASPARTATE AMINOTRANSFERASE ABNORMAL [None]
  - BLOOD ALKALINE PHOSPHATASE INCREASED [None]
  - DEATH [None]
  - GAMMA-GLUTAMYLTRANSFERASE ABNORMAL [None]
  - LIVER DISORDER [None]
  - MALAISE [None]
